FAERS Safety Report 18396636 (Version 1)
Quarter: 2020Q4

REPORT INFORMATION
  Report Type: Spontaneous
  Country: PT (occurrence: PT)
  Receive Date: 20201019
  Receipt Date: 20201019
  Transmission Date: 20210114
  Serious: Yes (Other)
  Sender: FDA-Public Use
  Company Number: PT-TEVA-2020-PT-1838904

PATIENT
  Age: 51 Year
  Sex: Female
  Weight: 81 kg

DRUGS (1)
  1. IBUPROFEN. [Suspect]
     Active Substance: IBUPROFEN
     Route: 048

REACTIONS (2)
  - Laryngeal oedema [Recovered/Resolved]
  - Lip oedema [Recovered/Resolved]

NARRATIVE: CASE EVENT DATE: 20160901
